FAERS Safety Report 17538218 (Version 3)
Quarter: 2020Q2

REPORT INFORMATION
  Report Type: Spontaneous
  Country: US (occurrence: US)
  Receive Date: 20200313
  Receipt Date: 20200408
  Transmission Date: 20200713
  Serious: Yes (Other)
  Sender: FDA-Public Use
  Company Number: US-PFIZER INC-2020109380

PATIENT
  Age: 72 Year
  Sex: Male

DRUGS (3)
  1. CELEBREX [Suspect]
     Active Substance: CELECOXIB
     Indication: PAIN
  2. CELEBREX [Suspect]
     Active Substance: CELECOXIB
     Indication: ARTHRITIS
     Dosage: 200 MG, UNK
     Route: 065
     Dates: end: 202001
  3. GLYSET [Suspect]
     Active Substance: MIGLITOL
     Dosage: 50 MG, UNK
     Route: 065
     Dates: end: 202001

REACTIONS (1)
  - Spinal stenosis [Unknown]
